FAERS Safety Report 10249999 (Version 2)
Quarter: 2014Q2

REPORT INFORMATION
  Report Type: Other
  Country: US (occurrence: US)
  Receive Date: 20140620
  Receipt Date: 20140620
  Transmission Date: 20141212
  Serious: Yes (Death, Other)
  Sender: FDA-Public Use
  Company Number: US-GSKPPD-2014GSK000142

PATIENT
  Age: 75 Year
  Sex: Male
  Weight: 80.36 kg

DRUGS (9)
  1. AVANDIA [Suspect]
     Indication: DIABETES MELLITUS
     Route: 048
     Dates: start: 2001
  2. PLAVIX [Concomitant]
  3. VALPROIC ACID [Concomitant]
  4. TEGRETOL [Concomitant]
  5. ZOCOR [Concomitant]
  6. LOPRESSOR [Concomitant]
  7. ZESTRIL [Concomitant]
  8. ASPIRIN [Concomitant]
  9. FUROSEMIDE [Concomitant]

REACTIONS (2)
  - Cardiac failure congestive [None]
  - Cerebrovascular accident [Fatal]
